FAERS Safety Report 12496837 (Version 1)
Quarter: 2016Q2

REPORT INFORMATION
  Report Type: Spontaneous
  Country: US (occurrence: US)
  Receive Date: 20160624
  Receipt Date: 20160624
  Transmission Date: 20160815
  Serious: No
  Sender: FDA-Public Use
  Company Number: US-ENDO PHARMACEUTICALS INC.-2016-001708

PATIENT
  Sex: Male

DRUGS (2)
  1. DOXAZOSIN MESYLATE TABLETS 8 MG [Suspect]
     Active Substance: DOXAZOSIN MESYLATE
     Indication: BLOOD PRESSURE MEASUREMENT
     Route: 048
     Dates: end: 2016
  2. DOXAZOSIN MESYLATE TABLETS 8 MG [Suspect]
     Active Substance: DOXAZOSIN MESYLATE
     Indication: MICTURITION DISORDER

REACTIONS (2)
  - Urinary incontinence [Recovered/Resolved]
  - Blood pressure increased [Unknown]
